FAERS Safety Report 10659531 (Version 3)
Quarter: 2015Q3

REPORT INFORMATION
  Report Type: Report from Study
  Country: NL (occurrence: NL)
  Receive Date: 20141217
  Receipt Date: 20150827
  Transmission Date: 20151125
  Serious: Yes (Hospitalization, Other)
  Sender: FDA-Public Use
  Company Number: NL-ABBVIE-14P-114-1319079-00

PATIENT
  Age: 70 Year
  Sex: Male
  Weight: 74 kg

DRUGS (4)
  1. LUCRIN [Suspect]
     Active Substance: LEUPROLIDE ACETATE
     Indication: PROSTATE CANCER
     Route: 058
     Dates: start: 20140918
  2. OXYCODON [Concomitant]
     Active Substance: OXYCODONE
     Indication: PAIN
     Dosage: MAX 30 MG DAILY
     Route: 048
     Dates: start: 20140930, end: 20141204
  3. ZOLEDRONIC ACID [Concomitant]
     Active Substance: ZOLEDRONIC ACID
     Indication: PRODUCT USED FOR UNKNOWN INDICATION
     Dosage: 0,04MG/ML FL 100ML
     Route: 058
     Dates: start: 20141110
  4. SODIUM CHLORIDE. [Concomitant]
     Active Substance: SODIUM CHLORIDE
     Indication: PRODUCT USED FOR UNKNOWN INDICATION
     Dosage: ACCORDING TO SCHEDULE
     Route: 058
     Dates: start: 20141110

REACTIONS (8)
  - Diaphragmatic hernia [Unknown]
  - Hot flush [Not Recovered/Not Resolved]
  - Prostatic specific antigen abnormal [Unknown]
  - Night sweats [Not Recovered/Not Resolved]
  - Diaphragmatic hernia [Unknown]
  - Wound [Unknown]
  - Gastrectomy [Unknown]
  - Pain [Unknown]

NARRATIVE: CASE EVENT DATE: 201410
